FAERS Safety Report 4269803-0 (Version None)
Quarter: 2004Q1

REPORT INFORMATION
  Report Type: 
  Country: None (occurrence: None)
  Receive Date: 20040112
  Receipt Date: 20030224
  Transmission Date: 20041129
  Serious: Yes (Life-Threatening)
  Sender: FDA-Public Use
  Company Number: US0301702

PATIENT
  Age: 19 Year
  Sex: Female

DRUGS (1)
  1. ADDERALL 10 [Suspect]
     Dosage: SEE NARRATIVE

REACTIONS (12)
  - APALLIC SYNDROME [None]
  - ARRHYTHMIA [None]
  - CARDIAC ARREST [None]
  - CARDIAC FAILURE CONGESTIVE [None]
  - CARDIOMYOPATHY [None]
  - CIRCULATORY COLLAPSE [None]
  - DRUG SCREEN POSITIVE [None]
  - EJECTION FRACTION DECREASED [None]
  - NODAL RHYTHM [None]
  - SELF-MEDICATION [None]
  - VENTRICULAR HYPERTROPHY [None]
  - VENTRICULAR TACHYCARDIA [None]
